FAERS Safety Report 25784853 (Version 2)
Quarter: 2025Q4

REPORT INFORMATION
  Report Type: Spontaneous
  Country: US (occurrence: US)
  Receive Date: 20250910
  Receipt Date: 20251009
  Transmission Date: 20260117
  Serious: Yes (Other)
  Sender: CSL BEHRING
  Company Number: US-BEH-2025217987

PATIENT
  Age: 52 Year
  Sex: Male

DRUGS (6)
  1. PRIVIGEN [Suspect]
     Active Substance: HUMAN IMMUNOGLOBULIN G
     Indication: Myasthenia gravis
     Dosage: 70 G, QMT
     Route: 042
     Dates: start: 202507, end: 2025
  2. EPINEPHRINE [Concomitant]
     Active Substance: EPINEPHRINE
     Dosage: INJ (1MLX10),
  3. ACETAMINOPHEN [Concomitant]
     Active Substance: ACETAMINOPHEN
  4. DIPHENHYDRAMINE [Concomitant]
     Active Substance: DIPHENHYDRAMINE
     Indication: Hypersensitivity
  5. HEPARIN [Concomitant]
     Active Substance: HEPARIN SODIUM
     Dosage: 5L/L FLUSH SYR ML
  6. SODIUM CHLORIDE [Concomitant]
     Active Substance: SODIUM CHLORIDE
     Dosage: FLUSH 5 ML

REACTIONS (6)
  - Meningitis aseptic [Unknown]
  - Pyrexia [Unknown]
  - Brain fog [Unknown]
  - Muscular weakness [Unknown]
  - Fatigue [Unknown]
  - Off label use [Unknown]

NARRATIVE: CASE EVENT DATE: 20250701
